FAERS Safety Report 4803698-9 (Version None)
Quarter: 2005Q4

REPORT INFORMATION
  Report Type: 
  Country: None (occurrence: None)
  Receive Date: 20051014
  Receipt Date: 20050930
  Transmission Date: 20060501
  Serious: Yes (Death)
  Sender: FDA-Public Use
  Company Number: 218240

PATIENT
  Age: 58 Year
  Sex: Female
  Weight: 85 kg

DRUGS (8)
  1. MABTHERA (RITUXIMAB) CONC FOR SOLUTION FOR INFUSION [Suspect]
     Indication: NON-HODGKIN'S LYMPHOMA
     Dosage: 700 MG, Q3W, INTRAVENOUS
     Route: 042
     Dates: start: 20050620, end: 20050830
  2. CYCLOPHOSPHAMIDE [Suspect]
     Indication: DIFFUSE LARGE B-CELL LYMPHOMA
     Dosage: 1500 MG, Q3W, INTRAVENOUS
     Route: 042
     Dates: start: 20050620, end: 20050830
  3. DOXORUBICIN HCL [Suspect]
     Indication: DIFFUSE LARGE B-CELL LYMPHOMA
     Dosage: 95 MG, Q3W, INTRAVENOUS
     Route: 042
     Dates: start: 20050620, end: 20050830
  4. PREDNISONE [Suspect]
     Indication: DIFFUSE LARGE B-CELL LYMPHOMA
     Dosage: 100 MG, Q3W, ORAL
     Route: 048
     Dates: start: 20050620, end: 20050830
  5. VINCRISTINE SULFATE [Suspect]
     Indication: DIFFUSE LARGE B-CELL LYMPHOMA
     Dosage: 2 MG, Q3W, INTRAVENOUS
     Route: 042
     Dates: start: 20050620, end: 20050830
  6. DEXAMETHASONE [Concomitant]
  7. RANITIDINE [Concomitant]
  8. DESMOPRESSIN (DESMOPRESSIN ACETATE) [Concomitant]

REACTIONS (1)
  - PYREXIA [None]
